FAERS Safety Report 17151142 (Version 1)
Quarter: 2019Q4

REPORT INFORMATION
  Report Type: Spontaneous
  Country: US (occurrence: US)
  Receive Date: 20191212
  Receipt Date: 20191212
  Transmission Date: 20200122
  Serious: No
  Sender: FDA-Public Use
  Company Number: None

PATIENT
  Sex: Male

DRUGS (1)
  1. YESCARTA [Suspect]
     Active Substance: AXICABTAGENE CILOLEUCEL

REACTIONS (9)
  - Diarrhoea [None]
  - Blood culture positive [None]
  - Pleural effusion [None]
  - Pneumococcal sepsis [None]
  - Orthostatic hypotension [None]
  - Bacteraemia [None]
  - Tachycardia [None]
  - Cytokine release syndrome [None]
  - Granulicatella bacteraemia [None]
